FAERS Safety Report 10400414 (Version 1)
Quarter: 2014Q3

REPORT INFORMATION
  Report Type: Spontaneous
  Country: US (occurrence: US)
  Receive Date: 20140821
  Receipt Date: 20140821
  Transmission Date: 20150326
  Serious: No
  Sender: FDA-Public Use
  Company Number: US-ASTRAZENECA-2013SE81193

PATIENT
  Age: 58 Year
  Sex: Female
  Weight: 113.4 kg

DRUGS (6)
  1. SYMBICORT [Suspect]
     Active Substance: BUDESONIDE\FORMOTEROL FUMARATE DIHYDRATE
     Indication: NASAL CONGESTION
     Dosage: 160 4.5MCG 2 PUFFS TWO TIMES A DAY
     Route: 055
     Dates: start: 201211
  2. SYMBICORT [Suspect]
     Active Substance: BUDESONIDE\FORMOTEROL FUMARATE DIHYDRATE
     Indication: COUGH
     Dosage: 160 4.5MCG 2 PUFFS TWO TIMES A DAY
     Route: 055
     Dates: start: 201207
  3. SYMBICORT [Suspect]
     Active Substance: BUDESONIDE\FORMOTEROL FUMARATE DIHYDRATE
     Indication: NASAL CONGESTION
     Dosage: 160 4.5MCG 2 PUFFS TWO TIMES A DAY
     Route: 055
     Dates: start: 201207
  4. FLOVENT [Concomitant]
     Active Substance: FLUTICASONE PROPIONATE
     Indication: ASTHMA
     Dates: end: 20131101
  5. SYMBICORT [Suspect]
     Active Substance: BUDESONIDE\FORMOTEROL FUMARATE DIHYDRATE
     Indication: COUGH
     Dosage: 160 4.5MCG 2 PUFFS TWO TIMES A DAY
     Route: 055
     Dates: start: 201211
  6. CREAM AND POWDER (NOT SPECIFIED) [Concomitant]
     Indication: FUNGAL SKIN INFECTION
     Dates: start: 20131031

REACTIONS (4)
  - Off label use [Unknown]
  - Fungal skin infection [Unknown]
  - Candida infection [Unknown]
  - Pruritus [Unknown]

NARRATIVE: CASE EVENT DATE: 201310
